FAERS Safety Report 4565647-0 (Version None)
Quarter: 2005Q1

REPORT INFORMATION
  Report Type: 
  Country: None (occurrence: None)
  Receive Date: 20050126
  Receipt Date: 20050114
  Transmission Date: 20050727
  Serious: Yes (Hospitalization)
  Sender: FDA-Public Use
  Company Number: 2005014804

PATIENT
  Age: 60 Year
  Sex: Male
  Weight: 81.6475 kg

DRUGS (1)
  1. ZANTAC 75 [Suspect]
     Indication: GASTROOESOPHAGEAL REFLUX DISEASE
     Dosage: ONE TAB BID, ORAL
     Route: 048
     Dates: start: 20041001, end: 20050101

REACTIONS (3)
  - ALOPECIA [None]
  - CORONARY ARTERY OCCLUSION [None]
  - THERAPY NON-RESPONDER [None]
